FAERS Safety Report 20105221 (Version 1)
Quarter: 2021Q4

REPORT INFORMATION
  Report Type: Other
  Country: US (occurrence: US)
  Receive Date: 20211124
  Receipt Date: 20211124
  Transmission Date: 20220303
  Serious: No
  Sender: FDA-Public Use
  Company Number: US-NEUROCRINE BIOSCIENCES INC.-2021NBI06599

PATIENT

DRUGS (1)
  1. INGREZZA [Suspect]
     Active Substance: VALBENAZINE
     Indication: Tardive dyskinesia
     Dosage: 80 MILLIGRAM, QAM
     Route: 048
     Dates: start: 2021, end: 2021

REACTIONS (4)
  - Sluggishness [Unknown]
  - Pollakiuria [Unknown]
  - Depressed level of consciousness [Unknown]
  - Gait inability [Unknown]

NARRATIVE: CASE EVENT DATE: 20210101
